FAERS Safety Report 16985182 (Version 2)
Quarter: 2019Q4

REPORT INFORMATION
  Report Type: Spontaneous
  Country: BG (occurrence: BG)
  Receive Date: 20191101
  Receipt Date: 20191127
  Transmission Date: 20200122
  Serious: Yes (Other)
  Sender: FDA-Public Use
  Company Number: BG-BAXTER-2019BAX021264

PATIENT
  Age: 64 Year
  Sex: Female
  Weight: 58 kg

DRUGS (17)
  1. FUROSER 10MG/ML SOLUTION FOR INJECTION [Suspect]
     Active Substance: FUROSEMIDE
     Indication: PRODUCT USED FOR UNKNOWN INDICATION
     Dosage: ONCE ?20 MG, SINGLE
     Route: 030
     Dates: start: 20181204, end: 20181204
  2. NO-SPA [Concomitant]
     Active Substance: DROTAVERINE HYDROCHLORIDE
     Indication: PRODUCT USED FOR UNKNOWN INDICATION
     Dosage: NO-SPA 20 MG/ML, 1 DF, AS NECESSARY
     Route: 065
  3. URSOFALK [Concomitant]
     Active Substance: URSODIOL
     Indication: PRODUCT USED FOR UNKNOWN INDICATION
     Dosage: 500 MG, ONCE DAILY
     Route: 065
  4. DIAPREL [Suspect]
     Active Substance: GLICLAZIDE
     Indication: PRODUCT USED FOR UNKNOWN INDICATION
     Dosage: 30 MG, ONCE DAILY
     Route: 065
  5. AERIUS [Concomitant]
     Indication: PRODUCT USED FOR UNKNOWN INDICATION
     Dosage: 5 MG, UNK
     Route: 065
  6. CONTROLOC [Concomitant]
     Active Substance: PANTOPRAZOLE SODIUM
     Indication: PRODUCT USED FOR UNKNOWN INDICATION
     Dosage: CONTROLOC 40 MG, 40 MG, ONCE DAILY
     Route: 065
  7. KREON [Concomitant]
     Active Substance: PANCRELIPASE
     Indication: PRODUCT USED FOR UNKNOWN INDICATION
     Dosage: KREON 25000, 3 DF, 2 TIMES DAILY
     Route: 065
  8. BUSCOLYSIN [Concomitant]
     Active Substance: BUTYLSCOPOLAMINE
     Indication: PRODUCT USED FOR UNKNOWN INDICATION
     Dosage: 1DF, AS NECESSARY
     Route: 065
  9. DIROTON [Concomitant]
     Active Substance: LISINOPRIL
     Indication: PRODUCT USED FOR UNKNOWN INDICATION
     Dosage: 10 MG, ONCE DAILY
     Route: 065
  10. TENOFOVIR DISOPROXIL [Concomitant]
     Active Substance: TENOFOVIR DISOPROXIL
     Indication: PRODUCT USED FOR UNKNOWN INDICATION
     Dosage: TENOFOVIR DISOPROXIL 245 MG TABLET ?245 MG, ONCE DAILY
     Route: 065
  11. NO-SPA [Concomitant]
     Active Substance: DROTAVERINE HYDROCHLORIDE
     Indication: PRODUCT USED FOR UNKNOWN INDICATION
     Dosage: NO-SPA 40 MG TABLETS, 40 MG, 6 TIMES DAILY
     Route: 065
  12. SPASMALGON [Concomitant]
     Active Substance: FENPIVERINIUM BROMIDE\METAMIZOLE SODIUM\PITOFENONE HYDROCHLORIDE
     Indication: PRODUCT USED FOR UNKNOWN INDICATION
     Dosage: 4 DF, 4 TIMES DAILY  ?SPASMOLGAN TABLETS
     Route: 065
  13. BUSCOLYSIN [Concomitant]
     Active Substance: BUTYLSCOPOLAMINE
     Indication: PRODUCT USED FOR UNKNOWN INDICATION
     Dosage: BUSCOLYSIN 20 MG/ML, 10 MG, 6 TIMES DAILY
     Route: 065
  14. DIAPREL MR [Concomitant]
     Active Substance: GLICLAZIDE
     Indication: PRODUCT USED FOR UNKNOWN INDICATION
     Dosage: DIAPREL MR 60 MG
     Route: 065
  15. BISOGAMMA [Concomitant]
     Active Substance: BISOPROLOL FUMARATE
     Indication: PRODUCT USED FOR UNKNOWN INDICATION
     Dosage: BISOGAMMA 5 MG, ?5 MG, ONCE DAILY
     Route: 065
  16. CHLOPHAZOLIN [Suspect]
     Active Substance: CLONIDINE HYDROCHLORIDE
     Indication: BLOOD PRESSURE INCREASED
     Dosage: 150 MCG/ML, SINGLE
     Route: 030
     Dates: start: 20181204, end: 20181204
  17. SPASMALGON [Concomitant]
     Active Substance: FENPIVERINIUM BROMIDE\METAMIZOLE SODIUM\PITOFENONE HYDROCHLORIDE
     Indication: PRODUCT USED FOR UNKNOWN INDICATION
     Dosage: 1 DF, AS NECESSARY
     Route: 065

REACTIONS (12)
  - Eye irritation [Recovered/Resolved]
  - Dizziness [Recovered/Resolved]
  - Amylase increased [Recovered/Resolved]
  - Myalgia [Recovered/Resolved]
  - Asthenia [Recovered/Resolved]
  - Thirst [Recovered/Resolved]
  - Pancreatitis [Not Recovered/Not Resolved]
  - Lipase increased [Recovered/Resolved]
  - Loss of consciousness [Recovered/Resolved]
  - Dry mouth [Recovered/Resolved]
  - Muscle spasms [Recovered/Resolved]
  - Tinnitus [Recovered/Resolved]

NARRATIVE: CASE EVENT DATE: 20181204
